FAERS Safety Report 5955469-8 (Version None)
Quarter: 2008Q4

REPORT INFORMATION
  Report Type: 
  Country: None (occurrence: None)
  Receive Date: 20081113
  Receipt Date: 20081113
  Transmission Date: 20090506
  Serious: No
  Sender: FDA-Public Use
  Company Number: None

PATIENT
  Age: 64 Year
  Sex: Male

DRUGS (1)
  1. VARENICLINE [Suspect]
     Dates: start: 20080708, end: 20080708

REACTIONS (3)
  - INSOMNIA [None]
  - NAUSEA [None]
  - VOMITING [None]
